FAERS Safety Report 14986283 (Version 1)
Quarter: 2018Q2

REPORT INFORMATION
  Report Type: Spontaneous
  Country: US (occurrence: US)
  Receive Date: 20180516
  Receipt Date: 20180516
  Transmission Date: 20180711
  Serious: Yes (Other)
  Sender: FDA-Public Use
  Company Number: None

PATIENT
  Age: 45 Year
  Sex: Male
  Weight: 152 kg

DRUGS (2)
  1. DAPTOMYCIN. [Suspect]
     Active Substance: DAPTOMYCIN
     Indication: SEPSIS
     Route: 042
  2. DAPTOMYCIN. [Suspect]
     Active Substance: DAPTOMYCIN
     Indication: OSTEOMYELITIS
     Route: 042

REACTIONS (3)
  - Freezing phenomenon [None]
  - Tremor [None]
  - Blood pressure increased [None]

NARRATIVE: CASE EVENT DATE: 20180508
